FAERS Safety Report 13045904 (Version 1)
Quarter: 2016Q4

REPORT INFORMATION
  Report Type: Spontaneous
  Country: US (occurrence: US)
  Receive Date: 20161220
  Receipt Date: 20161220
  Transmission Date: 20170207
  Serious: No
  Sender: FDA-Public Use
  Company Number: US-MEDA-2016120023

PATIENT
  Sex: Male

DRUGS (1)
  1. SOMA [Suspect]
     Active Substance: CARISOPRODOL
     Route: 048

REACTIONS (1)
  - Drug prescribing error [Unknown]
